FAERS Safety Report 11127901 (Version 1)
Quarter: 2015Q2

REPORT INFORMATION
  Report Type: Spontaneous
  Country: US (occurrence: US)
  Receive Date: 20150521
  Receipt Date: 20150521
  Transmission Date: 20150821
  Serious: No
  Sender: FDA-Public Use
  Company Number: US-TEVA-524981USA

PATIENT
  Sex: Female

DRUGS (1)
  1. HYDRALAZINE [Suspect]
     Active Substance: HYDRALAZINE HYDROCHLORIDE
     Dosage: 2 DOSES ONLY
     Dates: start: 20141119, end: 20141119

REACTIONS (2)
  - Pruritus [Unknown]
  - Burning sensation [Unknown]
